FAERS Safety Report 13100514 (Version 1)
Quarter: 2017Q1

REPORT INFORMATION
  Report Type: Spontaneous
  Country: US (occurrence: US)
  Receive Date: 20170109
  Receipt Date: 20170109
  Transmission Date: 20170428
  Serious: Yes (Disabling)
  Sender: FDA-Public Use
  Company Number: None

PATIENT
  Age: 48 Year
  Sex: Male
  Weight: 89.55 kg

DRUGS (1)
  1. ARTICAINE [Suspect]
     Active Substance: ARTICAINE
     Indication: DENTAL OPERATION
     Dosage: ?          OTHER ROUTE:DENTAL WORK INJECTED AT DENTIST?
     Dates: start: 20170104

REACTIONS (6)
  - Back pain [None]
  - Accidental exposure to product [None]
  - Chest pain [None]
  - Asphyxia [None]
  - Constipation [None]
  - Dyspnoea [None]

NARRATIVE: CASE EVENT DATE: 20170104
